FAERS Safety Report 22628354 (Version 1)
Quarter: 2023Q2

REPORT INFORMATION
  Report Type: Report from Study
  Country: GR (occurrence: GR)
  Receive Date: 20230622
  Receipt Date: 20230622
  Transmission Date: 20230722
  Serious: Yes (Hospitalization, Other)
  Sender: FDA-Public Use
  Company Number: GR-BAXTER-2023BAX024537

PATIENT
  Age: 61 Year
  Sex: Female

DRUGS (7)
  1. DOXORUBICIN [Suspect]
     Active Substance: DOXORUBICIN
     Indication: Diffuse large B-cell lymphoma
     Dosage: DOSAGE FORM: INJECTION, SOLUTION, 100 MG, EVERY 3 WEEKS (DAILY AND TOTAL DOSE: 4.761 MG)
     Route: 040
     Dates: start: 20230216, end: 20230216
  2. CYCLOPHOSPHAMIDE [Suspect]
     Active Substance: CYCLOPHOSPHAMIDE
     Indication: Diffuse large B-cell lymphoma
     Dosage: DOSAGE FORM: INJECTION, SOLUTION, 1500 MG, EVERY 3 WEEKS (DAILY ANF TOTAL DOSE: 71.42 MG)
     Route: 041
     Dates: start: 20230216, end: 20230216
  3. EPOETIN ALFA [Concomitant]
     Active Substance: ERYTHROPOIETIN
     Indication: Adverse event
     Dosage: 40000 IU, ONCE EVERY WEEK, (DAILY DOSE: 5714 MG)
     Route: 058
     Dates: start: 20230321
  4. FYRONEXE [Concomitant]
     Dosage: 8 MG, QD
     Route: 048
     Dates: start: 20230119
  5. NEBIVOLOL HYDROCHLORIDE [Concomitant]
     Active Substance: NEBIVOLOL HYDROCHLORIDE
     Dosage: 5 MG, QD
     Route: 048
     Dates: start: 20230119
  6. NEXIUM [Concomitant]
     Active Substance: ESOMEPRAZOLE MAGNESIUM
     Indication: Prophylaxis
     Dosage: 40 MG, QD
     Route: 048
     Dates: start: 20230211
  7. XARELTO [Concomitant]
     Active Substance: RIVAROXABAN
     Dosage: 20 MG, QD
     Route: 048
     Dates: start: 20230105

REACTIONS (1)
  - Febrile neutropenia [Not Recovered/Not Resolved]

NARRATIVE: CASE EVENT DATE: 20230607
